FAERS Safety Report 25940034 (Version 2)
Quarter: 2025Q4

REPORT INFORMATION
  Report Type: Spontaneous
  Country: US (occurrence: US)
  Receive Date: 20251020
  Receipt Date: 20251111
  Transmission Date: 20260117
  Serious: Yes (Other)
  Sender: TEVA
  Company Number: US-TEVA-VS-3382619

PATIENT
  Age: 58 Year
  Sex: Male

DRUGS (5)
  1. DULOXETINE [Suspect]
     Active Substance: DULOXETINE
     Indication: Glossopharyngeal neuralgia
     Route: 065
  2. GABAPENTIN [Suspect]
     Active Substance: GABAPENTIN
     Indication: Glossopharyngeal neuralgia
     Route: 065
  3. AMITRIPTYLINE [Suspect]
     Active Substance: AMITRIPTYLINE
     Indication: Glossopharyngeal neuralgia
     Route: 065
  4. PREGABALIN [Suspect]
     Active Substance: PREGABALIN
     Indication: Glossopharyngeal neuralgia
     Route: 065
  5. CARBAMAZEPINE [Suspect]
     Active Substance: CARBAMAZEPINE
     Indication: Glossopharyngeal neuralgia
     Route: 065

REACTIONS (6)
  - Erectile dysfunction [Unknown]
  - Urticaria [Unknown]
  - Therapy non-responder [Unknown]
  - Pruritus [Unknown]
  - Dysuria [Unknown]
  - Malaise [Unknown]
